FAERS Safety Report 7215752-5 (Version None)
Quarter: 2011Q1

REPORT INFORMATION
  Report Type: 
  Country: None (occurrence: None)
  Receive Date: 20110107
  Receipt Date: 20101230
  Transmission Date: 20110831
  Serious: Yes (Hospitalization, Other)
  Sender: FDA-Public Use
  Company Number: US-B.I. PHARMACEUTICALS,INC./RIDGEFIELD-2011-BP-00343BP

PATIENT
  Sex: Male

DRUGS (3)
  1. SPIRIVA [Suspect]
     Indication: PULMONARY FIBROSIS
     Dosage: 18 MCG
     Route: 055
     Dates: start: 20090101
  2. XOPENEX [Suspect]
     Indication: PULMONARY FIBROSIS
  3. ZYRTEC [Concomitant]
     Indication: PULMONARY FIBROSIS

REACTIONS (7)
  - TRANSIENT ISCHAEMIC ATTACK [None]
  - HYPOAESTHESIA FACIAL [None]
  - BLOOD CHOLESTEROL INCREASED [None]
  - ULCER [None]
  - PALPITATIONS [None]
  - HYPOAESTHESIA [None]
  - CARDIAC FAILURE CONGESTIVE [None]
